FAERS Safety Report 21930366 (Version 1)
Quarter: 2023Q1

REPORT INFORMATION
  Report Type: Report from Study
  Country: IN (occurrence: IN)
  Receive Date: 20230131
  Receipt Date: 20230131
  Transmission Date: 20230417
  Serious: Yes (Death)
  Sender: FDA-Public Use
  Company Number: IN-002147023-NVSC2023IN020157

PATIENT
  Age: 55 Year
  Sex: Male

DRUGS (1)
  1. TACROLIMUS [Suspect]
     Active Substance: TACROLIMUS
     Indication: Renal transplant
     Dosage: 0.5 MG, BID (MANUFACTURING DATE: OCT 2020)
     Route: 065
     Dates: start: 20150322

REACTIONS (3)
  - Death [Fatal]
  - Product quality issue [Unknown]
  - Product blister packaging issue [Unknown]

NARRATIVE: CASE EVENT DATE: 20221118
